FAERS Safety Report 8553256 (Version 4)
Quarter: 2013Q3

REPORT INFORMATION
  Report Type: Spontaneous
  Country: US (occurrence: None)
  Receive Date: 20120503
  Receipt Date: 20130718
  Transmission Date: 20140515
  Serious: Yes (Hospitalization)
  Sender: FDA-Public Use
  Company Number: JPI-P-021021

PATIENT
  Age: 68 Year
  Sex: Female
  Weight: 86.18 kg

DRUGS (8)
  1. XYREM [Suspect]
     Indication: HYPERSOMNIA
     Dosage: ORAL 6 GM (3 GM, 2 IN 1 D), ORAL
     Route: 048
     Dates: start: 20050919, end: 2012
  2. XYREM [Suspect]
     Indication: FIBROMYALGIA
     Dosage: ORAL 6 GM (3 GM, 2 IN 1 D), ORAL
     Route: 048
     Dates: start: 20050919, end: 2012
  3. LAMOTRIGINE [Concomitant]
  4. PRAMIPEXOLE DIHYDROCHLORIDE [Concomitant]
  5. SIMVASTATIN [Concomitant]
  6. LEVOTHYROXINE SODIUM [Concomitant]
  7. ACETYLSALICYLIC ACID [Concomitant]
  8. PRAMIPEXOLE DIHYDROCHLORIDE [Concomitant]

REACTIONS (8)
  - Small intestinal obstruction [None]
  - Pain [None]
  - Memory impairment [None]
  - Nasopharyngitis [None]
  - Rhinorrhoea [None]
  - Nasal congestion [None]
  - Oropharyngeal pain [None]
  - Fatigue [None]
